FAERS Safety Report 10214082 (Version 1)
Quarter: 2014Q2

REPORT INFORMATION
  Report Type: Spontaneous
  Country: GB (occurrence: GB)
  Receive Date: 20140603
  Receipt Date: 20140603
  Transmission Date: 20141212
  Serious: Yes (Other)
  Sender: FDA-Public Use
  Company Number: GB-JNJFOC-20140518562

PATIENT
  Age: 80 Year
  Sex: Female
  Weight: 95 kg

DRUGS (22)
  1. XARELTO [Suspect]
     Indication: PRODUCT USED FOR UNKNOWN INDICATION
     Route: 048
     Dates: start: 20140411
  2. BISACODYL [Concomitant]
     Route: 065
     Dates: start: 20140218, end: 20140318
  3. ESTRADIOL [Concomitant]
     Route: 065
     Dates: start: 20140317, end: 20140410
  4. FLUCLOXACILLIN [Concomitant]
     Route: 065
     Dates: end: 20140513
  5. FLUOXETINE [Concomitant]
     Route: 065
     Dates: start: 20140411, end: 20140425
  6. ALLOPURINOL [Concomitant]
     Route: 065
     Dates: start: 20140213, end: 20140411
  7. ATORVASTATIN [Concomitant]
     Route: 065
     Dates: start: 20140213, end: 20140411
  8. FUCIBET [Concomitant]
     Route: 065
     Dates: start: 20140501, end: 20140502
  9. COLECALCIFEROL [Concomitant]
     Route: 065
     Dates: start: 20140411, end: 20140502
  10. GAVISCON ADVANCE [Concomitant]
     Route: 065
     Dates: start: 20140317, end: 20140329
  11. HYDROCORTISON [Concomitant]
     Route: 065
     Dates: start: 20140218, end: 20140219
  12. LEVOTHYROXINE [Concomitant]
     Route: 065
     Dates: start: 20140213, end: 20140411
  13. MIRABEGRON [Concomitant]
     Route: 065
     Dates: start: 20140204, end: 20140411
  14. MUPIROCIN [Concomitant]
     Route: 065
     Dates: end: 20140507
  15. OILATUM [Concomitant]
     Route: 065
     Dates: start: 20140325, end: 20140422
  16. PROCHLORPERAZINE [Concomitant]
     Route: 065
     Dates: start: 20140124, end: 20140221
  17. SALBUTAMOL [Concomitant]
     Route: 065
     Dates: start: 20140404
  18. SALBUTAMOL [Concomitant]
     Route: 065
     Dates: start: 20140214, end: 20140411
  19. VAGIFEM [Concomitant]
     Route: 065
     Dates: start: 20140224, end: 20140320
  20. CHLORPHENAMINE [Concomitant]
     Route: 065
     Dates: start: 20140328, end: 20140425
  21. WARFARIN SODIUM [Concomitant]
     Route: 065
     Dates: start: 20140214, end: 20140502
  22. BUDESONIDE [Concomitant]
     Route: 065
     Dates: start: 20140214

REACTIONS (1)
  - Rash papular [Recovered/Resolved]
